FAERS Safety Report 9970305 (Version 2)
Quarter: 2014Q1

REPORT INFORMATION
  Report Type: Spontaneous
  Country: DE (occurrence: DE)
  Receive Date: 20140306
  Receipt Date: 20140325
  Transmission Date: 20141002
  Serious: Yes (Life-Threatening, Hospitalization, Disabling, Other)
  Sender: FDA-Public Use
  Company Number: DE-BRISTOL-MYERS SQUIBB COMPANY-20311577

PATIENT
  Age: 83 Year
  Sex: Female
  Weight: 53 kg

DRUGS (1)
  1. ELIQUIS [Suspect]
     Indication: ATRIAL FIBRILLATION
     Dates: start: 201312

REACTIONS (2)
  - Cerebral infarction [Not Recovered/Not Resolved]
  - Underdose [Unknown]
